FAERS Safety Report 13051509 (Version 1)
Quarter: 2016Q4

REPORT INFORMATION
  Report Type: Spontaneous
  Country: US (occurrence: US)
  Receive Date: 20161221
  Receipt Date: 20161221
  Transmission Date: 20170207
  Serious: No
  Sender: FDA-Public Use
  Company Number: US-NOVOPROD-482764

PATIENT
  Sex: Female

DRUGS (1)
  1. LEVEMIR [Suspect]
     Active Substance: INSULIN DETEMIR
     Indication: PRODUCT USED FOR UNKNOWN INDICATION
     Dosage: 10 U IN AM AND 30 U AT PM
     Route: 058
     Dates: end: 201602

REACTIONS (3)
  - Abdominal distension [Recovering/Resolving]
  - Epigastric discomfort [Recovering/Resolving]
  - Diarrhoea [Recovering/Resolving]
